FAERS Safety Report 5007787-8 (Version None)
Quarter: 2006Q2

REPORT INFORMATION
  Report Type: 
  Country: None (occurrence: None)
  Receive Date: 20060517
  Receipt Date: 20060508
  Transmission Date: 20061013
  Serious: Yes (Other)
  Sender: FDA-Public Use
  Company Number: 2006061035

PATIENT
  Age: 65 Year
  Sex: Male

DRUGS (7)
  1. AMLODIPINE [Suspect]
     Indication: HYPERTENSION
     Dosage: 5 MG ORAL
     Route: 048
     Dates: start: 20060321, end: 20060327
  2. BENDROFLUMETHIAZINE [Concomitant]
  3. ATENOLOL [Concomitant]
  4. LISINOPRIL [Concomitant]
  5. GLUCOSAMINE [Concomitant]
  6. ASPIRIN [Concomitant]
  7. SIMVASTATIN [Concomitant]

REACTIONS (1)
  - HALLUCINATIONS, MIXED [None]
